FAERS Safety Report 20434247 (Version 9)
Quarter: 2022Q4

REPORT INFORMATION
  Report Type: Report from Study
  Country: DO (occurrence: DO)
  Receive Date: 20220206
  Receipt Date: 20221129
  Transmission Date: 20230112
  Serious: Yes (Other)
  Sender: FDA-Public Use
  Company Number: DO-NOVARTISPH-NVSC2021DO100301

PATIENT
  Age: 47 Year
  Sex: Female
  Weight: 52.16 kg

DRUGS (3)
  1. KISQALI [Suspect]
     Active Substance: RIBOCICLIB
     Indication: Breast cancer
     Dosage: 600 MG, QD
     Route: 048
     Dates: start: 20190409
  2. KISQALI [Suspect]
     Active Substance: RIBOCICLIB
     Dosage: 600 MG, QD
     Route: 048
     Dates: start: 20190909
  3. FEMARA [Suspect]
     Active Substance: LETROZOLE
     Indication: Cancer hormonal therapy
     Dosage: 2.5 MG, QD (APPROXIMATELY ONE YEAR AGO)
     Route: 048

REACTIONS (39)
  - Chronic kidney disease [Unknown]
  - Breast cancer [Unknown]
  - Malignant neoplasm progression [Unknown]
  - Decreased immune responsiveness [Recovered/Resolved]
  - Osteoarthritis [Unknown]
  - Stress [Unknown]
  - Spinal disorder [Unknown]
  - Nerve injury [Unknown]
  - Back pain [Unknown]
  - Pulmonary mass [Unknown]
  - Pain [Unknown]
  - Discomfort [Unknown]
  - Burning sensation [Unknown]
  - Oral disorder [Unknown]
  - Weight decreased [Unknown]
  - Insomnia [Unknown]
  - Eating disorder [Unknown]
  - COVID-19 [Recovered/Resolved]
  - Dacryostenosis acquired [Unknown]
  - Hair texture abnormal [Unknown]
  - Nail disorder [Unknown]
  - Intervertebral disc degeneration [Unknown]
  - Ligament sprain [Unknown]
  - Inflammation [Unknown]
  - Varicose vein [Unknown]
  - Muscle mass [Unknown]
  - Pruritus [Unknown]
  - Cough [Unknown]
  - Red blood cell count decreased [Recovered/Resolved]
  - White blood cell count decreased [Recovered/Resolved]
  - Fatigue [Unknown]
  - Dyspnoea [Unknown]
  - Headache [Unknown]
  - Influenza [Not Recovered/Not Resolved]
  - Dry eye [Unknown]
  - Anaemia [Unknown]
  - Dry skin [Unknown]
  - Alopecia [Unknown]
  - Renal disorder [Unknown]

NARRATIVE: CASE EVENT DATE: 20211221
